FAERS Safety Report 8431438-3 (Version None)
Quarter: 2012Q2

REPORT INFORMATION
  Report Type: 
  Country: None (occurrence: None)
  Receive Date: 20120607
  Receipt Date: 20120607
  Transmission Date: 20120825
  Serious: Yes (Other)
  Sender: FDA-Public Use
  Company Number: None

PATIENT
  Age: 68 Year
  Sex: Female
  Weight: 45.3597 kg

DRUGS (3)
  1. VENLAFAXINE HCL [Suspect]
     Indication: DEPRESSION
     Dates: start: 20120501
  2. VENLAFAXINE HCL [Suspect]
     Indication: DEPRESSION
     Dates: start: 20111201
  3. VENLAFAXINE HCL [Suspect]
     Indication: DEPRESSION
     Dates: start: 20120101

REACTIONS (2)
  - DIZZINESS [None]
  - PARAESTHESIA ORAL [None]
